FAERS Safety Report 16079128 (Version 1)
Quarter: 2019Q1

REPORT INFORMATION
  Report Type: Spontaneous
  Country: US (occurrence: US)
  Receive Date: 20190315
  Receipt Date: 20190315
  Transmission Date: 20190418
  Serious: No
  Sender: FDA-Public Use
  Company Number: US-PERRIGO-18US005399

PATIENT
  Age: 30 Year
  Sex: Male
  Weight: 50.34 kg

DRUGS (7)
  1. DEXMETHYLPHENIDATE [Concomitant]
     Active Substance: DEXMETHYLPHENIDATE HYDROCHLORIDE
     Indication: ATTENTION DEFICIT/HYPERACTIVITY DISORDER
     Dosage: UNKNOWN, QAM
     Route: 065
  2. TESTOSTERONE CYPIONATE. [Suspect]
     Active Substance: TESTOSTERONE CYPIONATE
     Dosage: 0.45 ML, TWICE WEEKLY
     Route: 058
     Dates: start: 201804, end: 201805
  3. TESTOSTERONE CYPIONATE. [Suspect]
     Active Substance: TESTOSTERONE CYPIONATE
     Dosage: 0.45 ML, TWICE WEEKLY
     Route: 058
     Dates: start: 201805
  4. LEVOTHYROXINE. [Concomitant]
     Active Substance: LEVOTHYROXINE
     Indication: HYPOTHYROIDISM
     Dosage: UNK
     Route: 065
  5. TESTOSTERONE CYPIONATE. [Suspect]
     Active Substance: TESTOSTERONE CYPIONATE
     Dosage: 0.45 ML, TWICE WEEKLY
     Route: 058
     Dates: start: 2015, end: 201804
  6. TESTOSTERONE CYPIONATE. [Suspect]
     Active Substance: TESTOSTERONE CYPIONATE
     Indication: HYPOGONADISM
     Dosage: 90MG, TWICE WEEKLY
     Route: 030
     Dates: start: 20050131, end: 2015
  7. TESTOSTERONE CYPIONATE. [Suspect]
     Active Substance: TESTOSTERONE CYPIONATE
     Dosage: 0.45 ML, TWICE WEEKLY
     Route: 058
     Dates: start: 201804, end: 201805

REACTIONS (4)
  - Incorrect route of product administration [Unknown]
  - Drug effect decreased [Unknown]
  - Inappropriate schedule of product administration [Unknown]
  - Product administered at inappropriate site [Unknown]

NARRATIVE: CASE EVENT DATE: 20050131
